FAERS Safety Report 7774135-X (Version None)
Quarter: 2011Q3

REPORT INFORMATION
  Report Type: 
  Country: None (occurrence: None)
  Receive Date: 20110923
  Receipt Date: 20110913
  Transmission Date: 20111222
  Serious: Yes (Hospitalization)
  Sender: FDA-Public Use
  Company Number: US-JNJFOC-20110812865

PATIENT
  Sex: Male
  Weight: 47 kg

DRUGS (10)
  1. FERROUS SULFATE TAB [Concomitant]
  2. PROBIOTICS [Concomitant]
  3. SINGULAIR [Concomitant]
  4. ALLEGRA [Concomitant]
  5. INFLIXIMAB, RECOMBINANT [Suspect]
     Indication: INFLAMMATORY BOWEL DISEASE
     Route: 042
     Dates: start: 20100722, end: 20100916
  6. PRILOSEC [Concomitant]
  7. HUMIRA [Concomitant]
     Indication: INFLAMMATORY BOWEL DISEASE
     Dates: start: 20100930, end: 20110809
  8. METHOTREXATE [Concomitant]
  9. PREDNISONE [Concomitant]
  10. FOLIC ACID [Concomitant]

REACTIONS (1)
  - HAEMORRHAGIC ANAEMIA [None]
